FAERS Safety Report 13458193 (Version 1)
Quarter: 2017Q2

REPORT INFORMATION
  Report Type: Spontaneous
  Country: US (occurrence: US)
  Receive Date: 20170419
  Receipt Date: 20170419
  Transmission Date: 20170830
  Serious: No
  Sender: FDA-Public Use
  Company Number: US-BAYER-2017-067091

PATIENT
  Age: 64 Year
  Sex: Female
  Weight: 58.96 kg

DRUGS (2)
  1. TAXOTERE [Concomitant]
     Active Substance: DOCETAXEL
     Dosage: UNK
  2. MIRALAX [Suspect]
     Active Substance: POLYETHYLENE GLYCOL 3350
     Indication: ADVERSE DRUG REACTION
     Dosage: 3 CAPFULS DAILY DOSE
     Route: 048
     Dates: end: 20170405

REACTIONS (4)
  - Product use issue [Unknown]
  - Circumstance or information capable of leading to medication error [Unknown]
  - Intercepted medication error [Unknown]
  - Off label use [Unknown]

NARRATIVE: CASE EVENT DATE: 201701
